FAERS Safety Report 5759893-8 (Version None)
Quarter: 2008Q2

REPORT INFORMATION
  Report Type: 
  Country: None (occurrence: None)
  Receive Date: 20080605
  Receipt Date: 20080528
  Transmission Date: 20081010
  Serious: Yes (Other)
  Sender: FDA-Public Use
  Company Number: AU-WYE-H04359308

PATIENT

DRUGS (1)
  1. CORDARONE [Suspect]
     Dosage: NOT PROVIDED-50 MG/ML AMPOULE
     Route: 042

REACTIONS (3)
  - INFUSION RELATED REACTION [None]
  - NONSPECIFIC REACTION [None]
  - THROMBOPHLEBITIS [None]
